FAERS Safety Report 19447463 (Version 1)
Quarter: 2021Q2

REPORT INFORMATION
  Report Type: Spontaneous
  Country: US (occurrence: US)
  Receive Date: 20210621
  Receipt Date: 20210621
  Transmission Date: 20210717
  Serious: Yes (Hospitalization)
  Sender: FDA-Public Use
  Company Number: None

PATIENT
  Sex: Female

DRUGS (3)
  1. POTASSIUM CHLORIDE, CEPHALEXIN [Concomitant]
  2. LEVOTHYROXINE, POLYETHEL GLYCOL, LACTULOSE, DEXAMETHASONE [Concomitant]
  3. ZARXIO [Suspect]
     Active Substance: FILGRASTIM-SNDZ
     Indication: CERVIX CARCINOMA
     Dosage: ?          OTHER FREQUENCY:QD FOR FIVE DAYS;?
     Route: 058
     Dates: start: 20210416

REACTIONS (2)
  - Hospitalisation [None]
  - Therapy interrupted [None]
